FAERS Safety Report 9786291 (Version 1)
Quarter: 2013Q4

REPORT INFORMATION
  Report Type: Spontaneous
  Country: None (occurrence: None)
  Receive Date: 20131224
  Receipt Date: 20131224
  Transmission Date: 20140711
  Serious: Yes (Other)
  Sender: FDA-Public Use
  Company Number: 2013358185

PATIENT
  Age: 35 Year
  Sex: Male
  Weight: 92 kg

DRUGS (2)
  1. DALTEPAIN SODIUM (DALTEPARIN SODIUM) UNKNOWN [Suspect]
     Dates: start: 20131128
  2. HEPARINOID [Suspect]
     Dosage: TOPICAL
     Route: 061
     Dates: start: 20131129

REACTIONS (2)
  - Application site rash [None]
  - Injection site cellulitis [None]
